FAERS Safety Report 6297716-1 (Version None)
Quarter: 2009Q3

REPORT INFORMATION
  Report Type: 
  Country: None (occurrence: None)
  Receive Date: 20090804
  Receipt Date: 20090804
  Transmission Date: 20100115
  Serious: Yes (Other)
  Sender: FDA-Public Use
  Company Number: None

PATIENT
  Sex: Male
  Weight: 120.2032 kg

DRUGS (1)
  1. ZICAM COLD REMEDY GEL SWABS ZICAM LLC/MATRIXX INITIATIVES, INC [Suspect]
     Indication: LOWER RESPIRATORY TRACT INFECTION
     Dosage: SWAB 2-3 TIMES PER DAY NASAL
     Route: 045
     Dates: start: 20090422, end: 20090428

REACTIONS (1)
  - ANOSMIA [None]
